FAERS Safety Report 5994419-5 (Version None)
Quarter: 2008Q4

REPORT INFORMATION
  Report Type: 
  Country: None (occurrence: None)
  Receive Date: 20081212
  Receipt Date: 20080909
  Transmission Date: 20090506
  Serious: No
  Sender: FDA-Public Use
  Company Number: US-ABBOTT-08P-163-0475182-00

PATIENT
  Sex: Female
  Weight: 51.756 kg

DRUGS (5)
  1. HUMIRA [Suspect]
     Indication: RHEUMATOID ARTHRITIS
     Dates: start: 20080831
  2. LISINOPRIL [Interacting]
     Indication: HYPERTENSION
     Route: 048
     Dates: end: 20080909
  3. SIMVASTATIN [Interacting]
     Indication: BLOOD CHOLESTEROL INCREASED
     Route: 048
     Dates: start: 20080801, end: 20080909
  4. ORTHOTRICYCLINE LO [Interacting]
     Indication: CONTRACEPTION
     Route: 048
     Dates: start: 20080701, end: 20080909
  5. METHOTREXATE [Concomitant]
     Indication: DRUG USE FOR UNKNOWN INDICATION

REACTIONS (5)
  - ANGIOEDEMA [None]
  - DRUG INTERACTION [None]
  - MOUTH ULCERATION [None]
  - SKIN INDURATION [None]
  - SWELLING FACE [None]
